FAERS Safety Report 4707192-5 (Version None)
Quarter: 2005Q3

REPORT INFORMATION
  Report Type: 
  Country: None (occurrence: None)
  Receive Date: 20050701
  Receipt Date: 20050603
  Transmission Date: 20060218
  Serious: No
  Sender: FDA-Public Use
  Company Number: 2005-129005-NL

PATIENT
  Age: 19 Year
  Sex: Male

DRUGS (2)
  1. MIRTAZAPINE [Suspect]
     Indication: DEPRESSION
     Dosage: 7.5 MG/15 MG ORAL
     Route: 048
     Dates: start: 20050501, end: 20050501
  2. MIRTAZAPINE [Suspect]
     Indication: DEPRESSION
     Dosage: 7.5 MG/15 MG ORAL
     Route: 048

REACTIONS (5)
  - CONTUSION [None]
  - ECCHYMOSIS [None]
  - MYALGIA [None]
  - PAINFUL RESPIRATION [None]
  - RASH [None]
